FAERS Safety Report 15594460 (Version 2)
Quarter: 2018Q4

REPORT INFORMATION
  Report Type: Spontaneous
  Country: US (occurrence: US)
  Receive Date: 20181107
  Receipt Date: 20181126
  Transmission Date: 20190205
  Serious: Yes (Other)
  Sender: FDA-Public Use
  Company Number: US-GILEAD-2018-0371888

PATIENT
  Age: 83 Year
  Sex: Male
  Weight: 78.01 kg

DRUGS (10)
  1. CARDURA [Concomitant]
     Active Substance: DOXAZOSIN MESYLATE
  2. FOSAMAX [Concomitant]
     Active Substance: ALENDRONATE SODIUM
  3. VITAMIN D [Concomitant]
     Active Substance: CHOLECALCIFEROL
  4. LEVOTHYROXINE. [Concomitant]
     Active Substance: LEVOTHYROXINE
  5. REYATAZ [Concomitant]
     Active Substance: ATAZANAVIR SULFATE
  6. KLONOPIN [Concomitant]
     Active Substance: CLONAZEPAM
  7. BIKTARVY [Suspect]
     Active Substance: BICTEGRAVIR SODIUM\EMTRICITABINE\TENOFOVIR ALAFENAMIDE FUMARATE
     Indication: HIV INFECTION
     Dosage: UNK
     Route: 048
  8. VIREAD [Concomitant]
     Active Substance: TENOFOVIR DISOPROXIL FUMARATE
  9. NORVIR [Concomitant]
     Active Substance: RITONAVIR
  10. LASIX-K [Concomitant]

REACTIONS (7)
  - Peripheral swelling [Unknown]
  - Blood creatinine increased [Unknown]
  - White blood cell count increased [Unknown]
  - Blood bilirubin increased [Unknown]
  - Cellulitis [Unknown]
  - Peripheral venous disease [Unknown]
  - Rash pruritic [Unknown]
